FAERS Safety Report 22647201 (Version 1)
Quarter: 2023Q2

REPORT INFORMATION
  Report Type: Spontaneous
  Country: HU (occurrence: HU)
  Receive Date: 20230627
  Receipt Date: 20230627
  Transmission Date: 20230721
  Serious: Yes (Other)
  Sender: FDA-Public Use
  Company Number: HU-009507513-2306HUN012082

PATIENT
  Age: 71 Year
  Sex: Female

DRUGS (5)
  1. KEYTRUDA [Suspect]
     Active Substance: PEMBROLIZUMAB
     Indication: Lung adenocarcinoma stage IV
     Dosage: CYCLICAL
     Dates: start: 202108, end: 202110
  2. KEYTRUDA [Suspect]
     Active Substance: PEMBROLIZUMAB
     Dosage: CYCLICAL
  3. CARBOPLATIN [Suspect]
     Active Substance: CARBOPLATIN
     Indication: Lung adenocarcinoma stage IV
     Dosage: CYCLICAL
     Dates: start: 202108, end: 202110
  4. PEMETREXED [Suspect]
     Active Substance: PEMETREXED
     Indication: Lung adenocarcinoma stage IV
     Dosage: CYCLICAL
     Dates: start: 202108, end: 202110
  5. PEMETREXED [Suspect]
     Active Substance: PEMETREXED
     Dosage: CYCLICAL

REACTIONS (4)
  - Immune-mediated hepatitis [Recovered/Resolved]
  - Asphyxia [Recovering/Resolving]
  - Pneumonitis [Recovering/Resolving]
  - Therapy partial responder [Not Recovered/Not Resolved]

NARRATIVE: CASE EVENT DATE: 20211001
